FAERS Safety Report 10581580 (Version 1)
Quarter: 2014Q4

REPORT INFORMATION
  Report Type: Spontaneous
  Country: US (occurrence: US)
  Receive Date: 20141113
  Receipt Date: 20141113
  Transmission Date: 20150529
  Serious: Yes (Other)
  Sender: FDA-Public Use
  Company Number: US-SA-2014SA154891

PATIENT
  Sex: Female

DRUGS (2)
  1. LANTUS SOLOSTAR [Suspect]
     Active Substance: INSULIN GLARGINE
     Indication: DIABETES MELLITUS
     Route: 065
  2. SOLOSTAR [Concomitant]
     Active Substance: DEVICE

REACTIONS (7)
  - Visual acuity reduced [Unknown]
  - Condition aggravated [Unknown]
  - Glaucoma [Unknown]
  - Injection site discolouration [Unknown]
  - Eye haemorrhage [Unknown]
  - Retinal detachment [Unknown]
  - Injection site pain [Unknown]
